FAERS Safety Report 6171300-2 (Version None)
Quarter: 2009Q2

REPORT INFORMATION
  Report Type: 
  Country: None (occurrence: None)
  Receive Date: 20090428
  Receipt Date: 20090428
  Transmission Date: 20091009
  Serious: Yes (Other)
  Sender: FDA-Public Use
  Company Number: None

PATIENT
  Age: 40 Year
  Sex: Male
  Weight: 102.0593 kg

DRUGS (1)
  1. ZOLPIDEM TARTRATE [Suspect]
     Indication: INSOMNIA
     Dosage: 1 AT BED TIME 1 PO, NIGHTLY
     Route: 048
     Dates: start: 20020401, end: 20090211

REACTIONS (7)
  - AGGRESSION [None]
  - AMNESIA [None]
  - HALLUCINATION [None]
  - PHYSICAL ASSAULT [None]
  - SCREAMING [None]
  - SOMNAMBULISM [None]
  - UNRESPONSIVE TO STIMULI [None]
